FAERS Safety Report 15558196 (Version 2)
Quarter: 2018Q4

REPORT INFORMATION
  Report Type: Report from Study
  Country: US (occurrence: US)
  Receive Date: 20181027
  Receipt Date: 20181115
  Transmission Date: 20190205
  Serious: Yes (Death)
  Sender: FDA-Public Use
  Company Number: US-TESAROUBC-2018-TSO1389-US

PATIENT
  Age: 86 Year
  Sex: Male
  Weight: 77 kg

DRUGS (1)
  1. ZEJULA [Suspect]
     Active Substance: NIRAPARIB
     Indication: GASTRIC CANCER
     Dosage: 300 MG, QD
     Route: 048
     Dates: start: 20180827

REACTIONS (2)
  - Product use in unapproved indication [Unknown]
  - Disease progression [Fatal]

NARRATIVE: CASE EVENT DATE: 20181015
